FAERS Safety Report 4846071-X (Version None)
Quarter: 2005Q4

REPORT INFORMATION
  Report Type: 
  Country: None (occurrence: None)
  Receive Date: 20051201
  Receipt Date: 20050531
  Transmission Date: 20060501
  Serious: Yes (Hospitalization)
  Sender: FDA-Public Use
  Company Number: 2005BI006763

PATIENT
  Age: 51 Year
  Sex: Male

DRUGS (3)
  1. AVONEX [Suspect]
     Indication: MULTIPLE SCLEROSIS
     Dosage: 30 UG; QW; IM
     Route: 030
     Dates: start: 20030901
  2. SIMVASTATIN [Concomitant]
  3. IBUPROFEN [Concomitant]

REACTIONS (5)
  - ATRIAL FIBRILLATION [None]
  - DRY EYE [None]
  - DYSGEUSIA [None]
  - NAUSEA [None]
  - VOMITING [None]
